FAERS Safety Report 25477209 (Version 1)
Quarter: 2025Q2

REPORT INFORMATION
  Report Type: Spontaneous
  Country: US (occurrence: US)
  Receive Date: 20250625
  Receipt Date: 20250625
  Transmission Date: 20250717
  Serious: No
  Sender: ELI LILLY AND COMPANY
  Company Number: US-ELI_LILLY_AND_COMPANY-US202506017298

PATIENT
  Age: 61 Year
  Sex: Female

DRUGS (2)
  1. FORTEO [Suspect]
     Active Substance: TERIPARATIDE
     Indication: Osteoporosis
     Route: 065
     Dates: start: 202505
  2. FORTEO [Suspect]
     Active Substance: TERIPARATIDE
     Indication: Osteoporosis
     Route: 065
     Dates: start: 202505

REACTIONS (3)
  - Injection site discolouration [Unknown]
  - Product administered at inappropriate site [Unknown]
  - Injection site haemorrhage [Unknown]
